FAERS Safety Report 9209595 (Version 2)
Quarter: 2013Q2

REPORT INFORMATION
  Report Type: Spontaneous
  Country: US (occurrence: US)
  Receive Date: 20130404
  Receipt Date: 20130422
  Transmission Date: 20140414
  Serious: Yes (Death)
  Sender: FDA-Public Use
  Company Number: US-BRISTOL-MYERS SQUIBB COMPANY-18719609

PATIENT
  Age: 60 Year
  Sex: Male

DRUGS (1)
  1. CEENU [Suspect]
     Indication: BRAIN NEOPLASM
     Route: 048
     Dates: start: 20120905, end: 20130103

REACTIONS (1)
  - Malignant neoplasm progression [Fatal]
